FAERS Safety Report 4342174-7 (Version None)
Quarter: 2004Q2

REPORT INFORMATION
  Report Type: 
  Country: None (occurrence: None)
  Receive Date: 20040409
  Receipt Date: 20031113
  Transmission Date: 20050107
  Serious: Yes (Hospitalization)
  Sender: FDA-Public Use
  Company Number: 03P-163-0241231-00

PATIENT
  Age: 40 Year
  Sex: Male

DRUGS (1)
  1. DEPAKOTE [Suspect]
     Indication: CONVULSION
     Dosage: 250 MG, 6 IN 1 D, PER ORAL
     Route: 048
     Dates: end: 20030801

REACTIONS (1)
  - PANCREATITIS [None]
